FAERS Safety Report 15657933 (Version 1)
Quarter: 2018Q4

REPORT INFORMATION
  Report Type: Spontaneous
  Country: US (occurrence: US)
  Receive Date: 20181126
  Receipt Date: 20181126
  Transmission Date: 20190205
  Serious: No
  Sender: FDA-Public Use
  Company Number: US-PFIZER INC-2018485327

PATIENT
  Age: 42 Year
  Sex: Female

DRUGS (2)
  1. LYRICA [Suspect]
     Active Substance: PREGABALIN
     Indication: PANCREATITIS ACUTE
     Dosage: 450 MG, DAILY (1 CAPSULE 6 TIMES DAILY)
  2. LYRICA [Suspect]
     Active Substance: PREGABALIN
     Indication: CHOLECYSTITIS ACUTE

REACTIONS (3)
  - Product use in unapproved indication [Unknown]
  - Off label use [Unknown]
  - Nerve injury [Unknown]
